FAERS Safety Report 11684080 (Version 2)
Quarter: 2015Q4

REPORT INFORMATION
  Report Type: Spontaneous
  Country: US (occurrence: US)
  Receive Date: 20151029
  Receipt Date: 20151124
  Transmission Date: 20160304
  Serious: Yes (Other)
  Sender: FDA-Public Use
  Company Number: US-PFIZER INC-2015351519

PATIENT
  Age: 71 Year
  Sex: Male

DRUGS (2)
  1. BENZOCAINE. [Suspect]
     Active Substance: BENZOCAINE
     Indication: ANAESTHESIA
     Dosage: 20 %, UNK
     Route: 061
  2. MIDAZOLAM [Concomitant]
     Active Substance: MIDAZOLAM\MIDAZOLAM HYDROCHLORIDE
     Indication: ANAESTHESIA
     Dosage: 1 MG, UNK
     Route: 042

REACTIONS (2)
  - Hypoxia [Recovered/Resolved]
  - Methaemoglobinaemia [Recovered/Resolved]
